FAERS Safety Report 4369297-0 (Version None)
Quarter: 2004Q2

REPORT INFORMATION
  Report Type: 
  Country: None (occurrence: None)
  Receive Date: 20040602
  Receipt Date: 20040527
  Transmission Date: 20050107
  Serious: Yes (Hospitalization)
  Sender: FDA-Public Use
  Company Number: 03-02-0175

PATIENT
  Age: 70 Year
  Sex: Female

DRUGS (7)
  1. METFORMIN HCL [Suspect]
     Indication: DIABETES MELLITUS
     Dosage: 500MG TID ORAL
     Route: 048
     Dates: end: 20021225
  2. LISINOPRIL [Suspect]
     Indication: HYPERTENSION
     Dosage: 20MG OD ORAL
     Route: 048
     Dates: start: 19990701, end: 20021225
  3. ATORVASTATIN CALCIUM [Concomitant]
  4. ALLOPURINOL [Concomitant]
  5. FUROSEMIDE [Concomitant]
  6. LATANOPROST [Concomitant]
  7. AMLODIPINE [Concomitant]

REACTIONS (8)
  - DIARRHOEA [None]
  - DYSPNOEA [None]
  - HAEMODIALYSIS [None]
  - LOBAR PNEUMONIA [None]
  - METABOLIC ACIDOSIS [None]
  - RENAL FAILURE ACUTE [None]
  - SEPSIS [None]
  - VOMITING [None]
